FAERS Safety Report 26049795 (Version 1)
Quarter: 2025Q4

REPORT INFORMATION
  Report Type: Spontaneous
  Country: US (occurrence: US)
  Receive Date: 20251115
  Receipt Date: 20251115
  Transmission Date: 20260117
  Serious: No
  Sender: RECKITT BENCKISER
  Company Number: US-PROD-AS2-212756134-20-25-USA-RB-0000336

PATIENT
  Age: 85 Year
  Sex: Female
  Weight: 79.379 kg

DRUGS (3)
  1. DELSYM COUGH [Suspect]
     Active Substance: DEXTROMETHORPHAN HYDROBROMIDE
     Indication: Product used for unknown indication
     Dosage: TOOK 10 ML
     Route: 048
     Dates: start: 20250102, end: 20250102
  2. AMLODIPINE [Concomitant]
     Active Substance: AMLODIPINE BESYLATE
     Dosage: TOOK 10 ML AT 11:00 AM EST AND 10 ML AT
  3. LOSARTAN [Concomitant]
     Active Substance: LOSARTAN

REACTIONS (1)
  - Incorrect dose administered [Unknown]

NARRATIVE: CASE EVENT DATE: 20250102
